FAERS Safety Report 18788865 (Version 3)
Quarter: 2025Q2

REPORT INFORMATION
  Report Type: Spontaneous
  Country: JP (occurrence: JP)
  Receive Date: 20210126
  Receipt Date: 20250624
  Transmission Date: 20250716
  Serious: Yes (Hospitalization, Other)
  Sender: VIIV
  Company Number: JP-VIIV HEALTHCARE ULC-JP2021JPN006027

PATIENT
  Sex: Male
  Weight: 60 kg

DRUGS (11)
  1. TIVICAY [Interacting]
     Active Substance: DOLUTEGRAVIR SODIUM
     Indication: HIV infection
     Dosage: 50 MG, QD, AFTER BREAKFAST
  2. CARBAMAZEPINE [Interacting]
     Active Substance: CARBAMAZEPINE
     Indication: Epilepsy
     Dosage: 100 MG, QD, AFTER BREAKFAST
  3. CARBAMAZEPINE [Interacting]
     Active Substance: CARBAMAZEPINE
     Indication: Trigeminal neuralgia
     Dosage: 50 MG, QD
  4. DESCOVY [Concomitant]
     Active Substance: EMTRICITABINE\TENOFOVIR ALAFENAMIDE FUMARATE
     Dosage: 1 DF, 1D, AFTER BREAKFAST
  5. INTERFERON BETA [Concomitant]
     Active Substance: INTERFERON BETA
     Dosage: 1 DF, 1D
  6. ASPIRIN [Concomitant]
     Active Substance: ASPIRIN
     Dosage: 100 MG, 1D, AFTER BREAKFAST
  7. ATORVASTATIN [Concomitant]
     Active Substance: ATORVASTATIN
     Dosage: 10 MG, 1D, AFTER SUPPER
  8. CARVEDILOL [Concomitant]
     Active Substance: CARVEDILOL
     Dosage: 5 MG, BID, AFTER BREAKFAST AND SUPPER
  9. AZILSARTAN KAMEDOXOMIL [Concomitant]
     Active Substance: AZILSARTAN KAMEDOXOMIL
     Dosage: 20 MG, 1D, AFTER BREAKFAST
  10. METFORMIN [Concomitant]
     Active Substance: METFORMIN HYDROCHLORIDE
     Dosage: 750 MG, TID, AFTER EACH MEAL
  11. RABEPRAZOLE [Concomitant]
     Active Substance: RABEPRAZOLE
     Dosage: 10 MG, 1D, AFTER BREAKFAST

REACTIONS (6)
  - Multiple sclerosis relapse [Unknown]
  - Drug level decreased [Recovered/Resolved]
  - Viral load increased [Recovering/Resolving]
  - Visual acuity reduced [Unknown]
  - Movement disorder [Unknown]
  - Drug interaction [Unknown]

NARRATIVE: CASE EVENT DATE: 20181005
